FAERS Safety Report 4279714-2 (Version None)
Quarter: 2004Q1

REPORT INFORMATION
  Report Type: 
  Country: None (occurrence: None)
  Receive Date: 20040123
  Receipt Date: 20040112
  Transmission Date: 20041129
  Serious: Yes (Hospitalization)
  Sender: FDA-Public Use
  Company Number: 2004002110

PATIENT
  Age: 78 Year
  Sex: Female

DRUGS (1)
  1. NEURONTIN [Suspect]
     Indication: ILL-DEFINED DISORDER
     Dosage: 900 MG (TID), ORAL
     Route: 048
     Dates: start: 20031015, end: 20031127

REACTIONS (5)
  - ATAXIA [None]
  - FACE INJURY [None]
  - FALL [None]
  - HAEMATOMA [None]
  - VERTIGO [None]
